FAERS Safety Report 8541301 (Version 2)
Quarter: 2014Q1

REPORT INFORMATION
  Report Type: Spontaneous
  Country: US (occurrence: US)
  Receive Date: 20120502
  Receipt Date: 20140226
  Transmission Date: 20141002
  Serious: Yes (Hospitalization)
  Sender: FDA-Public Use
  Company Number: US-GLAXOSMITHKLINE-A0863315A

PATIENT
  Age: 47 Year
  Sex: Female
  Weight: 133.2 kg

DRUGS (1)
  1. AVANDIA [Suspect]
     Indication: DIABETES MELLITUS
     Dosage: 4MG PER DAY
     Route: 048
     Dates: start: 20020319, end: 20050819

REACTIONS (6)
  - Cerebrovascular accident [Not Recovered/Not Resolved]
  - Angina unstable [Unknown]
  - Cardiac failure congestive [Unknown]
  - Sinus arrest [Unknown]
  - Myocardial infarction [Unknown]
  - Pulmonary embolism [Unknown]
